FAERS Safety Report 5318218-2 (Version None)
Quarter: 2007Q2

REPORT INFORMATION
  Report Type: 
  Country: None (occurrence: None)
  Receive Date: 20070507
  Receipt Date: 20070425
  Transmission Date: 20071010
  Serious: Yes (Disabling, Other)
  Sender: FDA-Public Use
  Company Number: NO-PFIZER INC-2007026355

PATIENT
  Age: 42 Year
  Sex: Male

DRUGS (1)
  1. CHAMPIX [Suspect]
     Indication: SMOKING CESSATION THERAPY
     Route: 048

REACTIONS (6)
  - AGEUSIA [None]
  - DEPRESSED MOOD [None]
  - INSOMNIA [None]
  - LIBIDO DECREASED [None]
  - NEGATIVE THOUGHTS [None]
  - TESTICULAR DISORDER [None]
